FAERS Safety Report 12391076 (Version 1)
Quarter: 2016Q2

REPORT INFORMATION
  Report Type: Spontaneous
  Country: US (occurrence: US)
  Receive Date: 20160520
  Receipt Date: 20160520
  Transmission Date: 20160815
  Serious: No
  Sender: FDA-Public Use
  Company Number: US-PFIZER INC-2016139804

PATIENT
  Age: 36 Year
  Sex: Female
  Weight: 61.23 kg

DRUGS (8)
  1. BACLOFEN. [Concomitant]
     Active Substance: BACLOFEN
     Indication: MUSCLE DISORDER
     Dosage: 20 MG, 4X/DAY
  2. HYDROMORPHONE [Concomitant]
     Active Substance: HYDROMORPHONE
     Indication: PAIN
     Dosage: 4 MG, AS NEEDED
     Dates: start: 2014
  3. DIVALPROEX [Concomitant]
     Active Substance: DIVALPROEX SODIUM
     Indication: DEPRESSION
  4. LYRICA [Suspect]
     Active Substance: PREGABALIN
     Dosage: UNK
  5. DIVALPROEX [Concomitant]
     Active Substance: DIVALPROEX SODIUM
     Indication: PAIN
     Dosage: 500 MG, 3X/DAY
  6. ACETAMINOPHEN W/HYDROCODONE [Concomitant]
     Active Substance: ACETAMINOPHEN\HYDROCODONE
     Indication: PAIN
     Dosage: HYDROCODONE 10MG]/[ACETAMINOPHEN 325MG] 5 PILLS, DEPENDS ON PAIN
     Dates: start: 2004
  7. PHENYTOIN SODIUM. [Concomitant]
     Active Substance: PHENYTOIN SODIUM
     Indication: SEIZURE
     Dosage: 100 MG, TAKE 3 IN THE MORNING
     Dates: start: 2004
  8. DIVALPROEX [Concomitant]
     Active Substance: DIVALPROEX SODIUM
     Indication: SEIZURE

REACTIONS (2)
  - Intentional product misuse [Unknown]
  - C-reactive protein increased [Unknown]
